FAERS Safety Report 20069993 (Version 5)
Quarter: 2022Q1

REPORT INFORMATION
  Report Type: Report from Study
  Country: MX (occurrence: MX)
  Receive Date: 20211115
  Receipt Date: 20220206
  Transmission Date: 20220423
  Serious: Yes (Life-Threatening, Other)
  Sender: FDA-Public Use
  Company Number: MX-NOVARTISPH-NVSC2021MX229214

PATIENT
  Age: 37 Year
  Sex: Male
  Weight: 153 kg

DRUGS (11)
  1. ENTRESTO [Suspect]
     Active Substance: SACUBITRIL\VALSARTAN
     Indication: Cardiac failure
     Dosage: 0.5 DF, BID
     Route: 048
     Dates: start: 202108
  2. ENTRESTO [Suspect]
     Active Substance: SACUBITRIL\VALSARTAN
     Dosage: UNK
     Route: 048
     Dates: start: 20211019
  3. DAPAGLIFLOZIN [Concomitant]
     Active Substance: DAPAGLIFLOZIN
     Indication: Cardiac failure
     Dosage: 1 DOSAGE FORM, QD
     Route: 048
     Dates: start: 202108
  4. DAPAGLIFLOZIN [Concomitant]
     Active Substance: DAPAGLIFLOZIN
     Indication: Diabetes mellitus
  5. SPIRONOLACTONE [Concomitant]
     Active Substance: SPIRONOLACTONE
     Indication: Cardiac failure
     Dosage: 2 DOSAGE FORM, QD
     Route: 048
     Dates: start: 202108
  6. FUROSEMIDE [Concomitant]
     Active Substance: FUROSEMIDE
     Indication: Cardiac failure
     Dosage: 1 DOSAGE FORM, QD (3 WEEKS)
     Route: 048
     Dates: start: 202106
  7. FUROSEMIDE [Concomitant]
     Active Substance: FUROSEMIDE
     Indication: Diuretic therapy
     Dosage: UNK
     Route: 048
     Dates: start: 20211019
  8. ALLOPURINOL [Concomitant]
     Active Substance: ALLOPURINOL
     Indication: Cardiac failure
     Dosage: 1 DOSAGE FORM, QD
     Route: 048
     Dates: start: 202108
  9. HALOPERIDOL [Concomitant]
     Active Substance: HALOPERIDOL
     Indication: Product used for unknown indication
     Dosage: UNK
     Route: 048
  10. CARVEDILOL [Concomitant]
     Active Substance: CARVEDILOL
     Indication: Cardiac failure
     Dosage: 1 DOSAGE FORM, BID
     Route: 048
     Dates: start: 202108
  11. CARVEDILOL [Concomitant]
     Active Substance: CARVEDILOL
     Indication: Blood pressure increased

REACTIONS (20)
  - Feeling cold [Recovering/Resolving]
  - Syncope [Unknown]
  - Loss of consciousness [Unknown]
  - Feeling abnormal [Recovering/Resolving]
  - Discomfort [Unknown]
  - Dysstasia [Unknown]
  - Chest discomfort [Unknown]
  - Oedema [Not Recovered/Not Resolved]
  - Chest pain [Recovering/Resolving]
  - Abdominal pain upper [Recovering/Resolving]
  - Fatigue [Unknown]
  - Hypotension [Not Recovered/Not Resolved]
  - Weight abnormal [Unknown]
  - Sleep deficit [Recovering/Resolving]
  - Stress [Not Recovered/Not Resolved]
  - Malaise [Not Recovered/Not Resolved]
  - Dizziness [Unknown]
  - Decreased appetite [Not Recovered/Not Resolved]
  - Blood pressure increased [Unknown]
  - Wrong technique in product usage process [Unknown]

NARRATIVE: CASE EVENT DATE: 20210801
